FAERS Safety Report 7552927-X (Version None)
Quarter: 2011Q2

REPORT INFORMATION
  Report Type: 
  Country: None (occurrence: None)
  Receive Date: 20110616
  Receipt Date: 20100527
  Transmission Date: 20111010
  Serious: No
  Sender: FDA-Public Use
  Company Number: US-ASTRAZENECA-2008UW19127

PATIENT
  Age: 71 Year
  Sex: Female
  Weight: 77.1 kg

DRUGS (7)
  1. FASLODEX [Suspect]
     Indication: BREAST CANCER
     Dosage: 250 MG
     Route: 030
     Dates: start: 20080701
  2. LOVAZA [Concomitant]
  3. FASLODEX [Suspect]
     Route: 030
     Dates: start: 20100101
  4. IMODIUM [Concomitant]
     Indication: DIARRHOEA
  5. FASLODEX [Suspect]
     Route: 030
     Dates: start: 20090901
  6. TAMOXIFEN CITRATE [Suspect]
     Indication: BREAST CANCER
     Route: 048
  7. INSULIN [Concomitant]
     Indication: DIABETES MELLITUS

REACTIONS (15)
  - BONE PAIN [None]
  - HEADACHE [None]
  - DYSPEPSIA [None]
  - BACK PAIN [None]
  - JOINT SWELLING [None]
  - PAIN [None]
  - NAUSEA [None]
  - DYSPHONIA [None]
  - SINUS HEADACHE [None]
  - COUGH [None]
  - INJECTION SITE MASS [None]
  - DIZZINESS [None]
  - DIARRHOEA [None]
  - HYPERTRIGLYCERIDAEMIA [None]
  - VISION BLURRED [None]
